FAERS Safety Report 12766760 (Version 1)
Quarter: 2016Q3

REPORT INFORMATION
  Report Type: Spontaneous
  Country: CA (occurrence: CA)
  Receive Date: 20160921
  Receipt Date: 20160921
  Transmission Date: 20161109
  Serious: Yes (Other)
  Sender: FDA-Public Use
  Company Number: CA-ASTRAZENECA-2016SE97397

PATIENT

DRUGS (1)
  1. KOMBOGLYZE [Suspect]
     Active Substance: METFORMIN HYDROCHLORIDE\SAXAGLIPTIN
     Route: 048

REACTIONS (1)
  - Pancreatitis [Unknown]
